FAERS Safety Report 18156762 (Version 1)
Quarter: 2020Q3

REPORT INFORMATION
  Report Type: Spontaneous
  Country: ES (occurrence: ES)
  Receive Date: 20200817
  Receipt Date: 20200817
  Transmission Date: 20201103
  Serious: Yes (Hospitalization, Other)
  Sender: FDA-Public Use
  Company Number: ES-INVENTIA-000411

PATIENT
  Age: 44 Year
  Sex: Female

DRUGS (1)
  1. DULOXETINE. [Suspect]
     Active Substance: DULOXETINE
     Indication: INTENTIONAL OVERDOSE
     Dosage: 3 BOXES OF DULOXETINE 30 MG

REACTIONS (2)
  - Intentional overdose [Unknown]
  - Opsoclonus myoclonus [Recovered/Resolved]
